FAERS Safety Report 24989203 (Version 1)
Quarter: 2025Q1

REPORT INFORMATION
  Report Type: Spontaneous
  Country: CZ (occurrence: CZ)
  Receive Date: 20250220
  Receipt Date: 20250220
  Transmission Date: 20250408
  Serious: Yes (Hospitalization, Other)
  Sender: MERCK SHARP & DOHME LLC
  Company Number: CZ-009507513-2502CZE001075

PATIENT
  Sex: Female

DRUGS (1)
  1. PEMBROLIZUMAB [Suspect]
     Active Substance: PEMBROLIZUMAB
     Indication: Triple negative breast cancer

REACTIONS (4)
  - Clostridium difficile colitis [Recovered/Resolved with Sequelae]
  - Autoimmune colitis [Unknown]
  - Hepatitis [Unknown]
  - Gastrointestinal disorder [Unknown]
